FAERS Safety Report 22152742 (Version 1)
Quarter: 2023Q1

REPORT INFORMATION
  Report Type: Spontaneous
  Country: US (occurrence: None)
  Receive Date: 20230329
  Receipt Date: 20230329
  Transmission Date: 20230418
  Serious: Yes (Disabling)
  Sender: FDA-Public Use
  Company Number: None

PATIENT
  Age: 49 Year
  Sex: Female
  Weight: 97.65 kg

DRUGS (5)
  1. CLOPIDOGREL [Suspect]
     Active Substance: CLOPIDOGREL BISULFATE
     Indication: Stent placement
     Dosage: ORAL
     Route: 048
     Dates: start: 20230307
  2. METOPROLOL [Concomitant]
     Active Substance: METOPROLOL
  3. GLUCOMETER [Concomitant]
  4. ASPIRIN [Concomitant]
     Active Substance: ASPIRIN
  5. BLOOD PRESSURE MMONITOR [Concomitant]

REACTIONS (6)
  - Halo vision [None]
  - Visual impairment [None]
  - Eye pain [None]
  - Facial pain [None]
  - Headache [None]
  - Visual field defect [None]

NARRATIVE: CASE EVENT DATE: 20230307
